FAERS Safety Report 10687239 (Version 1)
Quarter: 2015Q1

REPORT INFORMATION
  Report Type: Spontaneous
  Country: IT (occurrence: IT)
  Receive Date: 20150102
  Receipt Date: 20150102
  Transmission Date: 20150720
  Serious: Yes (Hospitalization)
  Sender: FDA-Public Use
  Company Number: IT-INDICUS PHARMA-000288

PATIENT
  Age: 70 Year
  Sex: Male
  Weight: 75 kg

DRUGS (3)
  1. TAMSULOSIN/TAMSULOSIN HYDROCHLORIDE [Concomitant]
  2. METFORMIN [Suspect]
     Active Substance: METFORMIN HYDROCHLORIDE
     Indication: PRODUCT USED FOR UNKNOWN INDICATION
  3. HYDROCHLOROTHIAZIDE/IRBESARTAN [Suspect]
     Active Substance: HYDROCHLOROTHIAZIDE\IRBESARTAN
     Indication: PRODUCT USED FOR UNKNOWN INDICATION
     Dosage: 12.5 MG/150 MG

REACTIONS (8)
  - Lactic acidosis [Recovered/Resolved]
  - Dehydration [Recovering/Resolving]
  - Hypotension [None]
  - Gastrointestinal stoma complication [None]
  - Electrolyte depletion [None]
  - Acute prerenal failure [None]
  - Acute kidney injury [Recovered/Resolved]
  - Haemodialysis [None]
